FAERS Safety Report 10008105 (Version 1)
Quarter: 2014Q1

REPORT INFORMATION
  Report Type: Spontaneous
  Country: US (occurrence: US)
  Receive Date: 20140313
  Receipt Date: 20140313
  Transmission Date: 20141002
  Serious: No
  Sender: FDA-Public Use
  Company Number: US-TEVA-455376USA

PATIENT
  Age: 49 Year
  Sex: Female
  Weight: 45.4 kg

DRUGS (2)
  1. QUARTETTE [Suspect]
     Indication: CONTRACEPTION
     Dates: start: 201310
  2. MULTIVITAMIN [Concomitant]
     Indication: NUTRITIONAL SUPPLEMENTATION
     Route: 048

REACTIONS (5)
  - Muscle spasms [Recovered/Resolved]
  - Abdominal distension [Recovered/Resolved]
  - Abdominal distension [Recovered/Resolved]
  - Pain [Recovered/Resolved]
  - Menorrhagia [Not Recovered/Not Resolved]
